FAERS Safety Report 17405444 (Version 1)
Quarter: 2020Q1

REPORT INFORMATION
  Report Type: Spontaneous
  Country: SE (occurrence: SE)
  Receive Date: 20200212
  Receipt Date: 20200212
  Transmission Date: 20200409
  Serious: Yes (Other)
  Sender: FDA-Public Use
  Company Number: SE-TEVA-2020-SE-1183671

PATIENT
  Age: 17 Year
  Sex: Female

DRUGS (3)
  1. ATOMOXETINE. [Suspect]
     Active Substance: ATOMOXETINE HYDROCHLORIDE
     Indication: AFFECT LABILITY
     Dosage: 50 MG
     Route: 048
     Dates: start: 20200110, end: 20200110
  2. LERGIGAN [Concomitant]
     Dosage: 1-2 VB T.N.
  3. ATOMOXETINE. [Suspect]
     Active Substance: ATOMOXETINE HYDROCHLORIDE
     Indication: ATTENTION DEFICIT/HYPERACTIVITY DISORDER
     Dosage: 25 MG
     Route: 048
     Dates: start: 20200103, end: 20200109

REACTIONS (2)
  - Self-injurious ideation [Recovered/Resolved]
  - Depressed mood [Recovered/Resolved]

NARRATIVE: CASE EVENT DATE: 20200110
